FAERS Safety Report 5298389-7 (Version None)
Quarter: 2007Q2

REPORT INFORMATION
  Report Type: 
  Country: None (occurrence: None)
  Receive Date: 20070416
  Receipt Date: 20070404
  Transmission Date: 20071010
  Serious: Yes (Hospitalization)
  Sender: FDA-Public Use
  Company Number: US-PFIZER INC-2007027840

PATIENT

DRUGS (1)
  1. LYRICA [Suspect]

REACTIONS (2)
  - CARDIAC FAILURE CONGESTIVE [None]
  - SWELLING [None]
